FAERS Safety Report 9607927 (Version 1)
Quarter: 2013Q4

REPORT INFORMATION
  Report Type: Spontaneous
  Country: MX (occurrence: MX)
  Receive Date: 20131009
  Receipt Date: 20131009
  Transmission Date: 20140711
  Serious: Yes (Other)
  Sender: FDA-Public Use
  Company Number: MX-ASTRAZENECA-2013SE73226

PATIENT
  Age: 87 Year
  Sex: Male
  Weight: 50 kg

DRUGS (1)
  1. NEXIUM [Suspect]
     Route: 048
     Dates: start: 201210, end: 201305

REACTIONS (2)
  - Depression suicidal [Recovered/Resolved]
  - Intentional drug misuse [Unknown]
